FAERS Safety Report 22218361 (Version 1)
Quarter: 2023Q2

REPORT INFORMATION
  Report Type: Spontaneous
  Country: JP (occurrence: JP)
  Receive Date: 20230417
  Receipt Date: 20230417
  Transmission Date: 20230722
  Serious: Yes (Other)
  Sender: FDA-Public Use
  Company Number: JP-GILEAD-2023-0624325

PATIENT
  Age: 45 Year
  Sex: Male

DRUGS (3)
  1. TRUVADA [Suspect]
     Active Substance: EMTRICITABINE\TENOFOVIR DISOPROXIL FUMARATE
     Indication: HIV infection
     Dosage: UNK
     Route: 065
  2. DOLUTEGRAVIR SODIUM [Concomitant]
     Active Substance: DOLUTEGRAVIR SODIUM
     Indication: HIV infection
  3. SULFAMETHOXAZOLE AND TRIMETHOPRIM [Concomitant]
     Active Substance: SULFAMETHOXAZOLE\TRIMETHOPRIM
     Indication: Pneumocystis jirovecii infection
     Dosage: THE TRIMETHOPRIM COMPONENT OF 5 MG/KG PER DAY WAS GIVEN THREE TIMES DAILY
     Route: 065

REACTIONS (2)
  - Pneumocystis jirovecii infection [Recovering/Resolving]
  - Immune reconstitution inflammatory syndrome [Recovering/Resolving]
